FAERS Safety Report 25038594 (Version 1)
Quarter: 2025Q1

REPORT INFORMATION
  Report Type: Spontaneous
  Country: CN (occurrence: CN)
  Receive Date: 20250304
  Receipt Date: 20250304
  Transmission Date: 20250409
  Serious: Yes (Hospitalization, Other)
  Sender: JOHNSON AND JOHNSON
  Company Number: CN-JNJFOC-20250279458

PATIENT
  Age: 46 Year
  Sex: Male

DRUGS (3)
  1. INVEGA TRINZA [Suspect]
     Active Substance: PALIPERIDONE PALMITATE
     Indication: Schizophrenia
     Route: 030
     Dates: start: 20250101, end: 20250101
  2. INVEGA TRINZA [Suspect]
     Active Substance: PALIPERIDONE PALMITATE
  3. INVEGA TRINZA [Suspect]
     Active Substance: PALIPERIDONE PALMITATE

REACTIONS (7)
  - Extrapyramidal disorder [Recovering/Resolving]
  - Schizophrenia [Recovering/Resolving]
  - Hyperprolactinaemia [Unknown]
  - Hepatitis viral [Unknown]
  - Nephrolithiasis [Unknown]
  - Sinus tachycardia [Recovering/Resolving]
  - Hepatic steatosis [Unknown]
